FAERS Safety Report 21503318 (Version 3)
Quarter: 2022Q4

REPORT INFORMATION
  Report Type: Spontaneous
  Country: JP (occurrence: JP)
  Receive Date: 20221025
  Receipt Date: 20221121
  Transmission Date: 20230112
  Serious: Yes (Other)
  Sender: FDA-Public Use
  Company Number: JP-OTSUKA-2022_048894

PATIENT
  Age: 86 Year
  Sex: Female

DRUGS (11)
  1. REXULTI [Suspect]
     Active Substance: BREXPIPRAZOLE
     Indication: Dementia with Lewy bodies
     Dosage: 1MG/DAY
     Route: 048
     Dates: start: 20220922, end: 20221009
  2. REXULTI [Suspect]
     Active Substance: BREXPIPRAZOLE
     Indication: Hallucination, visual
  3. REXULTI [Suspect]
     Active Substance: BREXPIPRAZOLE
     Indication: Insomnia
  4. REXULTI [Suspect]
     Active Substance: BREXPIPRAZOLE
     Indication: Restlessness
  5. REXULTI [Suspect]
     Active Substance: BREXPIPRAZOLE
     Indication: Delusion
  6. ADALAT [Concomitant]
     Active Substance: NIFEDIPINE
     Indication: Product used for unknown indication
     Dosage: 20MG/DAY
     Route: 048
  7. OLMESARTAN MEDOXOMIL [Concomitant]
     Active Substance: OLMESARTAN MEDOXOMIL
     Indication: Product used for unknown indication
     Dosage: 5MG/DAY
     Route: 048
  8. MOSAPRIDE CITRATE [Concomitant]
     Active Substance: MOSAPRIDE CITRATE
     Indication: Product used for unknown indication
     Dosage: 10MG/DAY
     Route: 048
  9. ARICEPT [Concomitant]
     Active Substance: DONEPEZIL HYDROCHLORIDE
     Indication: Product used for unknown indication
     Dosage: 5MG/DAY
     Route: 048
  10. MIRABEGRON [Concomitant]
     Active Substance: MIRABEGRON
     Indication: Product used for unknown indication
     Dosage: 50MG/DAY
     Route: 048
  11. FEBUXOSTAT [Concomitant]
     Active Substance: FEBUXOSTAT
     Indication: Product used for unknown indication
     Dosage: 20MG/DAY
     Route: 048

REACTIONS (3)
  - Parkinsonism [Recovered/Resolved]
  - Sedation [Recovered/Resolved]
  - Product use in unapproved indication [Unknown]

NARRATIVE: CASE EVENT DATE: 20221009
